FAERS Safety Report 9096182 (Version 1)
Quarter: 2013Q1

REPORT INFORMATION
  Report Type: Spontaneous
  Country: US (occurrence: US)
  Receive Date: 20130207
  Receipt Date: 20130207
  Transmission Date: 20140127
  Serious: No
  Sender: FDA-Public Use
  Company Number: US-009507513-1302USA002839

PATIENT
  Sex: Female

DRUGS (3)
  1. CLARITIN [Suspect]
     Indication: PRODUCT USED FOR UNKNOWN INDICATION
     Dosage: UNK, QD
     Route: 048
     Dates: start: 201210
  2. OMEGA-3 [Concomitant]
     Indication: DRY EYE
     Dosage: UNK, UNKNOWN
  3. OMEGA-3 [Concomitant]
     Indication: MEDICAL OBSERVATION

REACTIONS (2)
  - Insomnia [Unknown]
  - Dizziness [Unknown]
